FAERS Safety Report 18351209 (Version 1)
Quarter: 2020Q4

REPORT INFORMATION
  Report Type: Spontaneous
  Country: US (occurrence: US)
  Receive Date: 20201006
  Receipt Date: 20201006
  Transmission Date: 20210114
  Serious: No
  Sender: FDA-Public Use
  Company Number: US-MILLICENT HOLDINGS LTD.-MILL20200990

PATIENT
  Age: 47 Year
  Sex: Female

DRUGS (1)
  1. INTRAROSA [Suspect]
     Active Substance: PRASTERONE
     Indication: MENOPAUSAL SYMPTOMS
     Dosage: 6.5 MG
     Route: 067

REACTIONS (3)
  - Product dose omission issue [Not Recovered/Not Resolved]
  - Off label use [None]
  - Product colour issue [Unknown]

NARRATIVE: CASE EVENT DATE: 2017
